FAERS Safety Report 21962357 (Version 1)
Quarter: 2023Q1

REPORT INFORMATION
  Report Type: Other
  Country: None (occurrence: TR)
  Receive Date: 20230207
  Receipt Date: 20230207
  Transmission Date: 20230417
  Serious: Yes (Hospitalization, Other)
  Sender: FDA-Public Use
  Company Number: TR-Spectra Medical Devices, LLC-2137608

PATIENT
  Age: 42 Year
  Sex: Female

DRUGS (1)
  1. LIDOCAINE HYDROCHLORIDE ANHYDROUS [Suspect]
     Active Substance: LIDOCAINE HYDROCHLORIDE ANHYDROUS
     Indication: Local anaesthesia
     Route: 065

REACTIONS (2)
  - Laryngeal oedema [Recovered/Resolved]
  - Salivary duct obstruction [Recovered/Resolved]
